FAERS Safety Report 15285219 (Version 1)
Quarter: 2018Q4

REPORT INFORMATION
  Report Type: Report from Study
  Country: DE (occurrence: DE)
  Receive Date: 20180816
  Receipt Date: 20180816
  Transmission Date: 20190204
  Serious: Yes (Life-Threatening, Hospitalization, Other)
  Sender: FDA-Public Use
  Company Number: DE-TEVA-2018-DE-941640

PATIENT
  Age: 80 Year
  Sex: Female
  Weight: 59 kg

DRUGS (20)
  1. ADRIMEDAC [Suspect]
     Active Substance: DOXORUBICIN HYDROCHLORIDE
     Indication: DIFFUSE LARGE B-CELL LYMPHOMA
     Dosage: ACCORDING TO R-CHOP 14
     Dates: start: 20161229, end: 20170127
  2. AMPHO MORONAL [Concomitant]
     Active Substance: AMPHOTERICIN B
     Indication: CANDIDA INFECTION
     Dosage: DAYS
     Route: 065
     Dates: start: 20160201
  3. ACICLOVIR [Concomitant]
     Active Substance: ACYCLOVIR
     Indication: PROPHYLAXIS
     Dosage: 3X1
     Route: 048
     Dates: start: 20170106
  4. COTRIM FORTE [Concomitant]
     Active Substance: SULFAMETHOXAZOLE\TRIMETHOPRIM
     Indication: ANTIFUNGAL PROPHYLAXIS
     Dosage: DAILY DOSE: 2880 MG MILLGRAM(S) EVERY WEEKS
     Route: 048
     Dates: start: 20170106
  5. LEVOFLOXACIN. [Concomitant]
     Active Substance: LEVOFLOXACIN
     Dosage: DAYS
     Route: 048
     Dates: start: 20170103
  6. DOXORUBICIN HYDROCHLORIDE. [Suspect]
     Active Substance: DOXORUBICIN HYDROCHLORIDE
     Indication: DIFFUSE LARGE B-CELL LYMPHOMA
     Dosage: ACCORDING TO R-CHOP 14
     Route: 042
     Dates: start: 20161229, end: 20170127
  7. MABTHERA [Suspect]
     Active Substance: RITUXIMAB
     Indication: DIFFUSE LARGE B-CELL LYMPHOMA
     Dosage: ACCORDING TO R-CHOP 14
     Route: 058
     Dates: start: 20170113, end: 20170127
  8. NOVAMINSULFON [Concomitant]
     Active Substance: METAMIZOLE
     Indication: PAIN
     Dosage: 120 GTT DAILY; AS REQUIRED
     Route: 048
     Dates: start: 20170103
  9. LEVOFLOXACIN. [Concomitant]
     Active Substance: LEVOFLOXACIN
     Route: 065
     Dates: start: 20170120, end: 20170124
  10. DOXORUBICIN HYDROCHLORIDE. [Suspect]
     Active Substance: DOXORUBICIN HYDROCHLORIDE
     Dosage: DAILY DOSE: 82 MG MILLGRAM(S) EVERY 14 DAYS
     Route: 042
     Dates: start: 20161230, end: 20170127
  11. CYCLOPHOSPHAMIDE. [Suspect]
     Active Substance: CYCLOPHOSPHAMIDE
     Dosage: DAILY DOSE: 1230 MG MILLGRAM(S) EVERY 14 DAYS
     Route: 042
     Dates: start: 20161230, end: 20170127
  12. VINCRISTIN [Concomitant]
     Active Substance: VINCRISTINE
     Indication: DIFFUSE LARGE B-CELL LYMPHOMA
     Dosage: ACCORDING TO R-CHOP 14
     Route: 042
     Dates: start: 20161222
  13. PANTOPRAZOL [Concomitant]
     Active Substance: PANTOPRAZOLE SODIUM
     Dosage: 40 MILLIGRAM DAILY; DAYS
     Route: 048
     Dates: start: 20161222
  14. DEKRISTOL [Concomitant]
     Active Substance: CHOLECALCIFEROL
     Indication: VITAMIN D DEFICIENCY
     Route: 048
     Dates: start: 20170103
  15. AZITHROMYCIN ANHYDROUS. [Concomitant]
     Active Substance: AZITHROMYCIN ANHYDROUS
     Indication: ANTIBIOTIC THERAPY
     Dosage: DAILY EVERY WEDNESDAY UNTIL SUNDAY
     Route: 048
     Dates: start: 20170113
  16. ADRIMEDAC [Suspect]
     Active Substance: DOXORUBICIN HYDROCHLORIDE
     Dosage: DAILY DOSE: 82 MG MILLGRAM(S) EVERY 14 DAYS
     Route: 042
     Dates: start: 20161230, end: 20170127
  17. CYCLOPHOSPHAMIDE. [Suspect]
     Active Substance: CYCLOPHOSPHAMIDE
     Indication: DIFFUSE LARGE B-CELL LYMPHOMA
     Dosage: ACCORDING TO R-CHOP 14
     Route: 042
     Dates: start: 20161229, end: 20161230
  18. SULFAMETHOXAZOLE/TRIMETHOPRIM [Concomitant]
     Active Substance: SULFAMETHOXAZOLE\TRIMETHOPRIM
     Indication: ANTIFUNGAL PROPHYLAXIS
     Route: 048
     Dates: start: 20170106
  19. VITAMIN D3 [Concomitant]
     Active Substance: CHOLECALCIFEROL
     Dosage: DAYS
     Route: 048
     Dates: start: 20170103
  20. MABTHERA [Suspect]
     Active Substance: RITUXIMAB
     Dosage: ACCORDING TO R-CHOP 14
     Route: 042
     Dates: start: 20161229, end: 20161230

REACTIONS (3)
  - Neutropenia [Recovered/Resolved]
  - Mucosal inflammation [Recovered/Resolved]
  - White blood cell count decreased [Recovered/Resolved]

NARRATIVE: CASE EVENT DATE: 20170120
